FAERS Safety Report 5400721-8 (Version None)
Quarter: 2007Q3

REPORT INFORMATION
  Report Type: 
  Country: None (occurrence: None)
  Receive Date: 20070730
  Receipt Date: 20070718
  Transmission Date: 20080115
  Serious: Yes (Other)
  Sender: FDA-Public Use
  Company Number: KR-PFIZER INC-2007061709

PATIENT
  Sex: Male

DRUGS (1)
  1. SUTENT [Suspect]
     Indication: RENAL CELL CARCINOMA STAGE UNSPECIFIED
     Route: 048

REACTIONS (11)
  - ANAL HAEMORRHAGE [None]
  - CONSTIPATION [None]
  - EPISTAXIS [None]
  - FACE OEDEMA [None]
  - GENERALISED OEDEMA [None]
  - MOUTH HAEMORRHAGE [None]
  - OEDEMA PERIPHERAL [None]
  - PAIN OF SKIN [None]
  - SKIN DISCOLOURATION [None]
  - SKIN EXFOLIATION [None]
  - SKIN INFLAMMATION [None]
